FAERS Safety Report 5654903-0 (Version None)
Quarter: 2008Q1

REPORT INFORMATION
  Report Type: 
  Country: None (occurrence: None)
  Receive Date: 20080307
  Receipt Date: 20070830
  Transmission Date: 20080703
  Serious: No
  Sender: FDA-Public Use
  Company Number: A0677762A

PATIENT
  Age: 41 Year
  Sex: Female

DRUGS (4)
  1. REQUIP [Suspect]
     Indication: RESTLESS LEGS SYNDROME
     Dosage: 10MG PER DAY
     Route: 048
     Dates: start: 20070809
  2. PRILOSEC [Concomitant]
  3. TYLENOL [Concomitant]
     Route: 048
  4. TYLENOL (CAPLET) [Concomitant]

REACTIONS (2)
  - BRUXISM [None]
  - HEADACHE [None]
